FAERS Safety Report 15093713 (Version 2)
Quarter: 2018Q3

REPORT INFORMATION
  Report Type: Other
  Country: CN (occurrence: CN)
  Receive Date: 20180629
  Receipt Date: 20180706
  Transmission Date: 20181010
  Serious: Yes (Hospitalization, Other)
  Sender: FDA-Public Use
  Company Number: CN-ACTELION-A-US2018-174496

PATIENT
  Age: 22 Year
  Sex: Female

DRUGS (5)
  1. VENTAVIS [Suspect]
     Active Substance: ILOPROST
     Indication: PULMONARY ARTERIAL HYPERTENSION
     Dosage: 20 MCG/ML
     Route: 055
  2. ROPIVACAINE [Concomitant]
     Active Substance: ROPIVACAINE
  3. DIGOXIN. [Concomitant]
     Active Substance: DIGOXIN
  4. DOPAMINE [Concomitant]
     Active Substance: DOPAMINE\DOPAMINE HYDROCHLORIDE
  5. LIDOCAINE. [Concomitant]
     Active Substance: LIDOCAINE

REACTIONS (5)
  - Premature delivery [Unknown]
  - Procedural hypotension [Recovering/Resolving]
  - Pregnancy [Unknown]
  - Caesarean section [Unknown]
  - Cardiac failure [Unknown]
